FAERS Safety Report 4852228-4 (Version None)
Quarter: 2005Q4

REPORT INFORMATION
  Report Type: 
  Country: None (occurrence: None)
  Receive Date: 20051123
  Receipt Date: 20050418
  Transmission Date: 20060501
  Serious: Yes (Hospitalization, Other)
  Sender: FDA-Public Use
  Company Number: US-JNJFOC-20050404481

PATIENT
  Age: 55 Year
  Sex: Male

DRUGS (4)
  1. LEVAQUIN [Suspect]
     Indication: PNEUMONIA
     Dosage: RECEIVED FOR 2 DAYS
     Dates: start: 20041101, end: 20041101
  2. LEVAQUIN [Suspect]
     Indication: PNEUMONIA
     Dosage: 500 MG ORAL
     Route: 048
     Dates: start: 20041101, end: 20041101
  3. COUMADIN [Concomitant]
  4. ASA (ACETYLSALICYCLIC ACID) [Concomitant]

REACTIONS (4)
  - ARTHRALGIA [None]
  - DEEP VEIN THROMBOSIS [None]
  - MYALGIA [None]
  - TENDON RUPTURE [None]
